FAERS Safety Report 6243460-6 (Version None)
Quarter: 2009Q2

REPORT INFORMATION
  Report Type: 
  Country: None (occurrence: None)
  Receive Date: 20090624
  Receipt Date: 20090615
  Transmission Date: 20091009
  Serious: Yes (Hospitalization)
  Sender: FDA-Public Use
  Company Number: US-AVENTIS-200915348US

PATIENT
  Age: 68 Year
  Sex: Female

DRUGS (3)
  1. LANTUS [Suspect]
     Route: 058
  2. UNKNOWN DRUG [Concomitant]
     Dosage: DOSE: UNK
  3. ANTITHROMBOTIC AGENTS [Concomitant]
     Dosage: DOSE: UNK

REACTIONS (4)
  - CLOSTRIDIAL INFECTION [None]
  - DIARRHOEA [None]
  - SENSORY LOSS [None]
  - VOMITING [None]
